FAERS Safety Report 16839475 (Version 1)
Quarter: 2019Q4

REPORT INFORMATION
  Report Type: Spontaneous
  Country: US (occurrence: US)
  Receive Date: 20190921
  Receipt Date: 20190921
  Transmission Date: 20200122
  Serious: No
  Sender: FDA-Public Use
  Company Number: None

PATIENT
  Age: 60 Year
  Sex: Female
  Weight: 90 kg

DRUGS (9)
  1. WELLBUTRIN [Concomitant]
     Active Substance: BUPROPION HYDROCHLORIDE
  2. CYTOMEL [Concomitant]
     Active Substance: LIOTHYRONINE SODIUM
  3. IBUPROFEN. [Concomitant]
     Active Substance: IBUPROFEN
  4. TYLENOL [Concomitant]
     Active Substance: ACETAMINOPHEN
  5. SYNTHROID [Concomitant]
     Active Substance: LEVOTHYROXINE SODIUM
  6. METOPROLOL. [Concomitant]
     Active Substance: METOPROLOL
  7. LEVOFLOXACIN. [Suspect]
     Active Substance: LEVOFLOXACIN
     Indication: SINUSITIS
     Dosage: ?          QUANTITY:1 TABLET(S);?
     Route: 048
     Dates: start: 20190902, end: 20190918
  8. ALEVE [Concomitant]
     Active Substance: NAPROXEN SODIUM
  9. KLONOPIN [Concomitant]
     Active Substance: CLONAZEPAM

REACTIONS (7)
  - Tendon pain [None]
  - Headache [None]
  - Myalgia [None]
  - Arthralgia [None]
  - Gait disturbance [None]
  - Disturbance in attention [None]
  - Insomnia [None]

NARRATIVE: CASE EVENT DATE: 20190902
